FAERS Safety Report 14647848 (Version 1)
Quarter: 2018Q1

REPORT INFORMATION
  Report Type: Spontaneous
  Country: NL (occurrence: NL)
  Receive Date: 20180316
  Receipt Date: 20180316
  Transmission Date: 20180509
  Serious: Yes (Other)
  Sender: FDA-Public Use
  Company Number: NL-TEVA-2018-NL-869022

PATIENT
  Age: 81 Year
  Sex: Male

DRUGS (1)
  1. METHOTREXAAT TAB 2,5 MG [Suspect]
     Active Substance: METHOTREXATE SODIUM
     Indication: RHEUMATOID ARTHRITIS
     Dosage: MONDAY 8 TAB
     Dates: start: 20110628, end: 20111018

REACTIONS (3)
  - Infection [Unknown]
  - Lung disorder [Unknown]
  - Bronchiectasis [Unknown]

NARRATIVE: CASE EVENT DATE: 20111018
